FAERS Safety Report 21690212 (Version 2)
Quarter: 2022Q4

REPORT INFORMATION
  Report Type: Report from Study
  Country: US (occurrence: US)
  Receive Date: 20221206
  Receipt Date: 20221208
  Transmission Date: 20230113
  Serious: Yes (Hospitalization)
  Sender: FDA-Public Use
  Company Number: US-PFIZER INC-PV202200117954

PATIENT
  Age: 92 Year
  Sex: Female

DRUGS (1)
  1. INLYTA [Suspect]
     Active Substance: AXITINIB
     Dosage: 1 MG, 2X/DAY [TK 2TS PO (PER ORAL) BID (TWICE A DAY)]
     Route: 048
     Dates: start: 20220811

REACTIONS (3)
  - Sinusitis [Recovering/Resolving]
  - Ear infection [Recovering/Resolving]
  - Product dose omission issue [Unknown]

NARRATIVE: CASE EVENT DATE: 20220101
